FAERS Safety Report 17569917 (Version 1)
Quarter: 2020Q1

REPORT INFORMATION
  Report Type: Spontaneous
  Country: US (occurrence: US)
  Receive Date: 20200316
  Receipt Date: 20200316
  Transmission Date: 20200409
  Serious: Yes (Life-Threatening, Hospitalization)
  Sender: FDA-Public Use
  Company Number: None

PATIENT
  Age: 67 Year
  Sex: Male
  Weight: 53 kg

DRUGS (1)
  1. LABETALOL (LABETALOL 5MG/ML INJ, CARPUJECT, 4ML) [Suspect]
     Active Substance: LABETALOL HYDROCHLORIDE
     Indication: HYPERTENSION
     Route: 042
     Dates: start: 20200308, end: 20200308

REACTIONS (5)
  - Chronic obstructive pulmonary disease [None]
  - Cough [None]
  - Respiratory distress [None]
  - Hypertension [None]
  - Wheezing [None]

NARRATIVE: CASE EVENT DATE: 20200308
